FAERS Safety Report 9191189 (Version 1)
Quarter: 2013Q1

REPORT INFORMATION
  Report Type: Spontaneous
  Country: DE (occurrence: DE)
  Receive Date: 20130326
  Receipt Date: 20130326
  Transmission Date: 20140127
  Serious: Yes (Hospitalization)
  Sender: FDA-Public Use
  Company Number: DE-TEVA-393230GER

PATIENT
  Sex: Female

DRUGS (3)
  1. AMIODARON [Suspect]
     Indication: ATRIAL FIBRILLATION
     Route: 048
     Dates: start: 1993
  2. CALCIUM CARBONATE W/CHOLECALCIFEROL/SODIUM [Interacting]
     Indication: OSTEOPOROSIS
     Dosage: 1DF 100 MG CALCIUM AND 880 I.U. COLECALCIFEROL
     Route: 048
  3. METOHEXAL 47.5 MG [Concomitant]
     Dosage: 95 MILLIGRAM DAILY;
     Route: 048
     Dates: start: 1993

REACTIONS (4)
  - Cardiac disorder [Recovered/Resolved]
  - Electrocardiogram abnormal [Recovered/Resolved]
  - Atrial fibrillation [Recovered/Resolved]
  - Drug interaction [Recovered/Resolved]
